FAERS Safety Report 23989558 (Version 1)
Quarter: 2024Q2

REPORT INFORMATION
  Report Type: Report from Study
  Country: CO (occurrence: CO)
  Receive Date: 20240619
  Receipt Date: 20240619
  Transmission Date: 20240715
  Serious: Yes (Hospitalization, Other)
  Sender: FDA-Public Use
  Company Number: CO-AMGEN-COLSL2024118133

PATIENT
  Age: 60 Year
  Sex: Female

DRUGS (1)
  1. VECTIBIX [Suspect]
     Active Substance: PANITUMUMAB
     Indication: Colorectal cancer metastatic
     Dosage: UNK, Q2WK, BIWEEKLY
     Route: 042
     Dates: start: 20231003

REACTIONS (3)
  - Adverse reaction [Not Recovered/Not Resolved]
  - Herpes virus infection [Not Recovered/Not Resolved]
  - Colorectal cancer metastatic [Not Recovered/Not Resolved]
